FAERS Safety Report 8861920 (Version 1)
Quarter: 2012Q4

REPORT INFORMATION
  Report Type: 
  Country: BR (occurrence: BR)
  Receive Date: 20121026
  Receipt Date: 20121026
  Transmission Date: 20130627
  Serious: Yes (Other)
  Sender: FDA-Public Use
  Company Number: BR-AMGEN-BRASP2012065326

PATIENT
  Age: 58 Year
  Sex: Female
  Weight: 65 kg

DRUGS (4)
  1. ENBREL [Suspect]
     Indication: RHEUMATOID ARTHRITIS
     Dosage: UNK
     Route: 058
     Dates: end: 201206
  2. ARADOIS H [Concomitant]
     Dosage: once a day
  3. ARAVA [Concomitant]
     Dosage: UNK
  4. CODEINE [Concomitant]
     Dosage: UNK

REACTIONS (5)
  - Rheumatic disorder [Unknown]
  - Arthrodesis [Unknown]
  - Ankle deformity [Unknown]
  - Ligament rupture [Unknown]
  - Deformity [Unknown]
